FAERS Safety Report 9993513 (Version 1)
Quarter: 2014Q1

REPORT INFORMATION
  Report Type: Spontaneous
  Country: US (occurrence: US)
  Receive Date: 20140310
  Receipt Date: 20140310
  Transmission Date: 20141002
  Serious: Yes (Hospitalization, Other)
  Sender: FDA-Public Use
  Company Number: US-WATSON-2014-03901

PATIENT
  Sex: Male

DRUGS (1)
  1. TESTOSTERONE CYPIONATE (WATSON LABORATORIES) [Suspect]
     Indication: PRODUCT USED FOR UNKNOWN INDICATION
     Dosage: 2 ML,, EVERY 2 WEEKS
     Route: 030
     Dates: start: 20121113

REACTIONS (4)
  - Oedema peripheral [Unknown]
  - Erythema [Unknown]
  - Infection [Unknown]
  - Renal impairment [Unknown]
